FAERS Safety Report 7741358-5 (Version None)
Quarter: 2011Q3

REPORT INFORMATION
  Report Type: 
  Country: None (occurrence: None)
  Receive Date: 20110909
  Receipt Date: 20110908
  Transmission Date: 20111222
  Serious: No
  Sender: FDA-Public Use
  Company Number: US-PFIZER INC-2011211506

PATIENT
  Sex: Female
  Weight: 58.503 kg

DRUGS (1)
  1. CHANTIX [Suspect]
     Indication: SMOKING CESSATION THERAPY
     Dosage: UNK
     Dates: start: 20110801, end: 20110904

REACTIONS (8)
  - OEDEMA PERIPHERAL [None]
  - NAUSEA [None]
  - GAIT DISTURBANCE [None]
  - PAIN [None]
  - EXPIRED DRUG ADMINISTERED [None]
  - MUSCLE SPASMS [None]
  - FEELING ABNORMAL [None]
  - ABDOMINAL DISCOMFORT [None]
